FAERS Safety Report 10445961 (Version 2)
Quarter: 2014Q3

REPORT INFORMATION
  Report Type: Spontaneous
  Country: KR (occurrence: KR)
  Receive Date: 20140910
  Receipt Date: 20140910
  Transmission Date: 20150326
  Serious: Yes (Other)
  Sender: FDA-Public Use
  Company Number: KR-PFIZER INC-2014246745

PATIENT
  Age: 6 Year
  Sex: Female

DRUGS (1)
  1. METHYLPREDNISOLONE ACETATE. [Suspect]
     Active Substance: METHYLPREDNISOLONE ACETATE
     Indication: ACUTE DISSEMINATED ENCEPHALOMYELITIS
     Dosage: 30 MG/KG/DAY
     Route: 042

REACTIONS (1)
  - Optic neuritis [Recovered/Resolved]
